FAERS Safety Report 5076839-9 (Version None)
Quarter: 2006Q3

REPORT INFORMATION
  Report Type: 
  Country: None (occurrence: None)
  Receive Date: 20060807
  Receipt Date: 20060721
  Transmission Date: 20061208
  Serious: Yes (Hospitalization)
  Sender: FDA-Public Use
  Company Number: 2005BI020899

PATIENT
  Age: 53 Year
  Sex: Female
  Weight: 72.5755 kg

DRUGS (9)
  1. AVONEX [Suspect]
     Indication: MULTIPLE SCLEROSIS
     Dosage: 30 UG;QW;IM
     Route: 030
     Dates: start: 19991101, end: 20030101
  2. AVONEX [Suspect]
     Indication: MULTIPLE SCLEROSIS
     Dosage: 30 UG;QW;IM
     Route: 030
     Dates: start: 20030101
  3. CHOLESTEROL MEDICATION [Concomitant]
  4. PROZAC [Concomitant]
  5. DETROL LA [Concomitant]
  6. PROVIGIL [Concomitant]
  7. XANAX [Concomitant]
  8. LESCOL [Concomitant]
  9. GLYCOLAX [Concomitant]

REACTIONS (8)
  - BALANCE DISORDER [None]
  - CONCUSSION [None]
  - FALL [None]
  - FATIGUE [None]
  - MUSCULAR WEAKNESS [None]
  - PROGRESSIVE MULTIPLE SCLEROSIS [None]
  - SOMNOLENCE [None]
  - STRESS [None]
